FAERS Safety Report 6325325-4 (Version None)
Quarter: 2009Q3

REPORT INFORMATION
  Report Type: 
  Country: None (occurrence: None)
  Receive Date: 20090824
  Receipt Date: 20090715
  Transmission Date: 20100115
  Serious: No
  Sender: FDA-Public Use
  Company Number: US-ABBOTT-09P-163-0585482-00

PATIENT
  Sex: Male
  Weight: 68.554 kg

DRUGS (3)
  1. NIASPAN [Suspect]
     Indication: HIGH DENSITY LIPOPROTEIN DECREASED
     Dates: start: 20020101, end: 20030210
  2. NIASPAN [Suspect]
     Dates: start: 20090601
  3. PATIENT CAN'T REMEMBER MEDICATIONS FROM 2002-2003 [Concomitant]
     Indication: DRUG USE FOR UNKNOWN INDICATION

REACTIONS (4)
  - FEELING HOT [None]
  - FLUSHING [None]
  - PRURITUS GENERALISED [None]
  - RASH MACULAR [None]
